FAERS Safety Report 15215275 (Version 1)
Quarter: 2018Q3

REPORT INFORMATION
  Report Type: Spontaneous
  Country: US (occurrence: US)
  Receive Date: 20180730
  Receipt Date: 20180730
  Transmission Date: 20181010
  Serious: No
  Sender: FDA-Public Use
  Company Number: US-JNJFOC-20180713727

PATIENT
  Age: 70 Year
  Sex: Female
  Weight: 53.07 kg

DRUGS (14)
  1. PEPCID AC MAXIMUM STRENGTH [Suspect]
     Active Substance: FAMOTIDINE
     Indication: ABDOMINAL DISCOMFORT
     Route: 065
     Dates: start: 20180626, end: 20180630
  2. PEPCID AC MAXIMUM STRENGTH [Suspect]
     Active Substance: FAMOTIDINE
     Indication: ADVERSE EVENT
     Dosage: 1 TABLET FROM THE NEW BOX
     Route: 065
     Dates: start: 20180709
  3. PEPCID AC MAXIMUM STRENGTH [Suspect]
     Active Substance: FAMOTIDINE
     Indication: GASTRITIS
     Dosage: 1 TABLET FROM THE NEW BOX
     Route: 065
     Dates: start: 20180709
  4. PEPCID AC MAXIMUM STRENGTH [Suspect]
     Active Substance: FAMOTIDINE
     Indication: HUNGER
     Dosage: 1 TABLET FROM THE NEW BOX
     Route: 065
     Dates: start: 20180709
  5. PEPCID AC MAXIMUM STRENGTH [Suspect]
     Active Substance: FAMOTIDINE
     Indication: ADVERSE EVENT
     Route: 065
     Dates: start: 20180626, end: 20180630
  6. CALCIUM CARBONATE W/MAGNESIUM [Concomitant]
     Indication: HUNGER
     Route: 065
  7. PEPCID AC MAXIMUM STRENGTH [Suspect]
     Active Substance: FAMOTIDINE
     Indication: GASTRITIS
     Route: 065
     Dates: start: 20180626, end: 20180630
  8. PEPCID AC MAXIMUM STRENGTH [Suspect]
     Active Substance: FAMOTIDINE
     Indication: HUNGER
     Route: 065
     Dates: start: 20180626, end: 20180630
  9. CALCIUM CARBONATE W/MAGNESIUM [Concomitant]
     Indication: ADVERSE EVENT
     Route: 065
  10. PEPCID AC MAXIMUM STRENGTH [Suspect]
     Active Substance: FAMOTIDINE
     Indication: ABDOMINAL DISCOMFORT
     Dosage: 1 TABLET FROM THE NEW BOX
     Route: 065
     Dates: start: 20180709
  11. CALCIUM CARBONATE W/MAGNESIUM [Concomitant]
     Indication: ABDOMINAL DISCOMFORT
     Route: 065
  12. PEPCID AC MAXIMUM STRENGTH [Suspect]
     Active Substance: FAMOTIDINE
     Indication: DYSPEPSIA
     Dosage: 1 TABLET FROM THE NEW BOX
     Route: 065
     Dates: start: 20180709
  13. CALCIUM CARBONATE W/MAGNESIUM [Concomitant]
     Indication: DYSPEPSIA
     Route: 065
  14. PEPCID AC MAXIMUM STRENGTH [Suspect]
     Active Substance: FAMOTIDINE
     Indication: DYSPEPSIA
     Route: 065
     Dates: start: 20180626, end: 20180630

REACTIONS (5)
  - Dyspepsia [Recovered/Resolved]
  - Hunger [Recovered/Resolved]
  - Abdominal discomfort [Recovered/Resolved]
  - Adverse event [Recovered/Resolved]
  - Product use in unapproved indication [Unknown]

NARRATIVE: CASE EVENT DATE: 20180626
